FAERS Safety Report 13236534 (Version 1)
Quarter: 2017Q1

REPORT INFORMATION
  Report Type: Spontaneous
  Country: US (occurrence: US)
  Receive Date: 20170215
  Receipt Date: 20170215
  Transmission Date: 20170428
  Serious: Yes (Other)
  Sender: FDA-Public Use
  Company Number: US-JUBILANT CADISTA PHARMACEUTICALS-2017JUB00046

PATIENT
  Age: 26 Year
  Sex: Male

DRUGS (2)
  1. LITHIUM. [Concomitant]
     Active Substance: LITHIUM
     Dosage: 900 MG, 1X/DAY
     Route: 065
  2. RISPERIDONE. [Suspect]
     Active Substance: RISPERIDONE
     Indication: PSYCHOTIC DISORDER
     Dosage: 6 MG, 1X/DAY
     Route: 065

REACTIONS (1)
  - Cataract [Unknown]
